FAERS Safety Report 24546406 (Version 1)
Quarter: 2024Q4

REPORT INFORMATION
  Report Type: Spontaneous
  Country: CA (occurrence: CA)
  Receive Date: 20241024
  Receipt Date: 20241024
  Transmission Date: 20250115
  Serious: Yes (Other)
  Sender: TEVA
  Company Number: CA-TEVA-VS-3255541

PATIENT
  Age: 56 Year
  Sex: Female

DRUGS (3)
  1. ESOMEPRAZOLE MAGNESIUM [Suspect]
     Active Substance: ESOMEPRAZOLE MAGNESIUM
     Indication: Product used for unknown indication
     Route: 065
  2. WELIREG [Interacting]
     Active Substance: BELZUTIFAN
     Indication: Von Hippel-Lindau disease
     Route: 048
  3. PANTOPRAZOLE SODIUM [Concomitant]
     Active Substance: PANTOPRAZOLE SODIUM
     Indication: Product used for unknown indication
     Route: 065

REACTIONS (4)
  - Anaemia [Unknown]
  - Fall [Unknown]
  - Drug interaction [Unknown]
  - Wound infection [Unknown]
